FAERS Safety Report 15641963 (Version 1)
Quarter: 2018Q4

REPORT INFORMATION
  Report Type: Spontaneous
  Country: FR (occurrence: FR)
  Receive Date: 20181121
  Receipt Date: 20181121
  Transmission Date: 20190205
  Serious: Yes (Hospitalization)
  Sender: FDA-Public Use
  Company Number: FR-TEVA-2018-FR-976662

PATIENT
  Age: 89 Year
  Sex: Female

DRUGS (4)
  1. TEMESTA 1 MG, COMPRIM? S?CABLE [Suspect]
     Active Substance: LORAZEPAM
     Indication: WRONG PATIENT RECEIVED PRODUCT
     Route: 048
     Dates: start: 20180830
  2. MIRTAZAPINE. [Suspect]
     Active Substance: MIRTAZAPINE
     Indication: WRONG PATIENT RECEIVED PRODUCT
     Route: 048
     Dates: start: 20180830
  3. PANTOPRAZOLE [Concomitant]
     Active Substance: PANTOPRAZOLE
  4. DAFALGAN [Concomitant]
     Active Substance: ACETAMINOPHEN

REACTIONS (3)
  - Medication error [Recovered/Resolved]
  - Wrong patient received product [Recovered/Resolved]
  - Somnolence [Recovered/Resolved]

NARRATIVE: CASE EVENT DATE: 20180830
